FAERS Safety Report 8289434-5 (Version None)
Quarter: 2012Q1

REPORT INFORMATION
  Report Type: 
  Country: None (occurrence: None)
  Receive Date: 20120322
  Receipt Date: 20120221
  Transmission Date: 20120608
  Serious: Yes (Hospitalization)
  Sender: FDA-Public Use
  Company Number: UTC-015889

PATIENT
  Age: 13 Year
  Sex: Male
  Weight: 48.18 kg

DRUGS (4)
  1. TYVASO [Suspect]
     Indication: PULMONARY ARTERIAL HYPERTENSION
     Dosage: 18-54 MICROGRAMS (4 IN 1 D), INHALATION; 144 MCG (36 MCG, 4 IN 1 D), INHALATION
     Route: 055
     Dates: start: 20120201
  2. TYVASO [Suspect]
     Indication: PULMONARY ARTERIAL HYPERTENSION
     Dosage: 18-54 MICROGRAMS (4 IN 1 D), INHALATION; 144 MCG (36 MCG, 4 IN 1 D), INHALATION
     Route: 055
     Dates: start: 20111205
  3. TRACLEER [Concomitant]
  4. REVATIO [Concomitant]

REACTIONS (4)
  - PERIPHERAL COLDNESS [None]
  - UPPER RESPIRATORY TRACT INFECTION [None]
  - EPISTAXIS [None]
  - PLATELET COUNT DECREASED [None]
